FAERS Safety Report 14545212 (Version 2)
Quarter: 2018Q1

REPORT INFORMATION
  Report Type: Report from Study
  Country: US (occurrence: MX)
  Receive Date: 20180218
  Receipt Date: 20180228
  Transmission Date: 20180509
  Serious: Yes (Other)
  Sender: FDA-Public Use
  Company Number: US-SUNOVION-2018SUN000600

PATIENT
  Sex: Female

DRUGS (1)
  1. INDACATEROL AND GLYCOPYRROLATE [Suspect]
     Active Substance: GLYCOPYRROLATE\INDACATEROL MALEATE
     Indication: RESPIRATORY DISORDER
     Dosage: 1 DF (110 UG INDACATEROL, 50 UG GLYCOPYRRONIUM BROMIDE), QD  (3 YEARS AGO) (REGIMEN #1)
     Route: 065

REACTIONS (3)
  - Product use in unapproved indication [Unknown]
  - Fatigue [Unknown]
  - Asphyxia [Unknown]
